FAERS Safety Report 9633228 (Version 1)
Quarter: 2013Q4

REPORT INFORMATION
  Report Type: Spontaneous
  Country: US (occurrence: None)
  Receive Date: 20131018
  Receipt Date: 20131018
  Transmission Date: 20140711
  Serious: Yes (Life-Threatening, Other)
  Sender: FDA-Public Use
  Company Number: None

PATIENT
  Age: 61 Year
  Sex: Female
  Weight: 54.89 kg

DRUGS (1)
  1. FENTANYL PATCH [Suspect]
     Indication: PAIN
     Dosage: 1 PATCH/ EVERY 48 HOURS; GIVEN INTO/UNDER THE SKIN
     Dates: start: 20131014, end: 20131015

REACTIONS (12)
  - Restlessness [None]
  - Insomnia [None]
  - Pain [None]
  - Pollakiuria [None]
  - Blood pressure increased [None]
  - Palpitations [None]
  - Hyperhidrosis [None]
  - Nausea [None]
  - Diarrhoea [None]
  - Dry mouth [None]
  - Thirst [None]
  - Product quality issue [None]
